FAERS Safety Report 7039951-0 (Version None)
Quarter: 2010Q4

REPORT INFORMATION
  Report Type: 
  Country: None (occurrence: None)
  Receive Date: 20101012
  Receipt Date: 20100908
  Transmission Date: 20110411
  Serious: Yes (Life-Threatening, Hospitalization, Disabling)
  Sender: FDA-Public Use
  Company Number: SI-ELI_LILLY_AND_COMPANY-SI201005005001

PATIENT
  Age: 79 Year
  Sex: Female
  Weight: 58.4 kg

DRUGS (8)
  1. FORTEO [Suspect]
     Indication: OSTEOPOROSIS POSTMENOPAUSAL
     Dosage: 20 UG, DAILY (1/D)
     Route: 058
     Dates: start: 20091208, end: 20100512
  2. PLIVIT D3 [Concomitant]
     Dosage: UNK, (56 ONCE WEEKLY) UNKNOWN
     Route: 065
  3. AGLURAB [Concomitant]
     Dosage: 850 MG, 2/D
     Route: 065
  4. GLUCOTROL XL [Concomitant]
     Dosage: UNK, 2 TABLETS MORNING
     Route: 065
  5. COAXIL [Concomitant]
     Dosage: UNK, 2 TIMES 1 TABLET
     Route: 065
  6. OLICARD [Concomitant]
     Dosage: 40 MG, DAILY (1/D)
     Route: 065
  7. ASASANTINE [Concomitant]
     Dosage: UNK, UNKNOWN
     Route: 065
  8. ZALDIAR [Concomitant]
     Dosage: UNK, AS NEEDED
     Route: 065

REACTIONS (1)
  - LUNG ADENOCARCINOMA METASTATIC [None]
